FAERS Safety Report 11328852 (Version 1)
Quarter: 2015Q3

REPORT INFORMATION
  Report Type: Spontaneous
  Country: US (occurrence: US)
  Receive Date: 20150801
  Receipt Date: 20150801
  Transmission Date: 20151125
  Serious: No
  Sender: FDA-Public Use
  Company Number: US-009507513-1507USA009077

PATIENT
  Sex: Female

DRUGS (1)
  1. PROVENTIL [Suspect]
     Active Substance: ALBUTEROL
     Dosage: 2 DF, BID

REACTIONS (3)
  - Product quality issue [Unknown]
  - Drug administration error [Unknown]
  - No adverse event [Unknown]
